FAERS Safety Report 18081848 (Version 1)
Quarter: 2020Q3

REPORT INFORMATION
  Report Type: Spontaneous
  Country: DE (occurrence: DE)
  Receive Date: 20200728
  Receipt Date: 20200728
  Transmission Date: 20201103
  Serious: Yes (Death, Other)
  Sender: FDA-Public Use
  Company Number: DE-PFIZER INC-2020283554

PATIENT
  Age: 36 Year
  Sex: Male
  Weight: 102 kg

DRUGS (3)
  1. TEMAZEPAM. [Interacting]
     Active Substance: TEMAZEPAM
     Dosage: UNK
     Route: 065
  2. 5F?CUMYL?PEGACLONE [Interacting]
     Active Substance: 5-FLUORO CUMYL-PEGACLONE
     Dosage: UNK
  3. PREGABALIN. [Suspect]
     Active Substance: PREGABALIN
     Dosage: UNK
     Route: 065

REACTIONS (2)
  - Drug interaction [Fatal]
  - Depressed level of consciousness [Fatal]

NARRATIVE: CASE EVENT DATE: 201901
